FAERS Safety Report 16303284 (Version 2)
Quarter: 2019Q2

REPORT INFORMATION
  Report Type: Spontaneous
  Country: CA (occurrence: CA)
  Receive Date: 20190513
  Receipt Date: 20190514
  Transmission Date: 20190711
  Serious: Yes (Hospitalization, Other)
  Sender: FDA-Public Use
  Company Number: CA-ROCHE-2313066

PATIENT
  Age: 70 Year
  Sex: Male

DRUGS (1)
  1. OCREVUS [Suspect]
     Active Substance: OCRELIZUMAB
     Indication: MULTIPLE SCLEROSIS
     Route: 042
     Dates: start: 20180502

REACTIONS (4)
  - Lumbar vertebral fracture [Unknown]
  - Asthenia [Unknown]
  - Sensory loss [Unknown]
  - Fall [Unknown]

NARRATIVE: CASE EVENT DATE: 20181228
